FAERS Safety Report 6754237-7 (Version None)
Quarter: 2010Q2

REPORT INFORMATION
  Report Type: 
  Country: None (occurrence: None)
  Receive Date: 20100603
  Receipt Date: 20100526
  Transmission Date: 20101027
  Serious: Yes (Hospitalization)
  Sender: FDA-Public Use
  Company Number: US-GENENTECH-302315

PATIENT
  Age: 12 Year
  Sex: Male

DRUGS (2)
  1. PULMOZYME [Suspect]
     Indication: CYSTIC FIBROSIS
  2. PULMOZYME [Suspect]
     Indication: ENDOTRACHEAL INTUBATION
     Dosage: UNK, Q2H

REACTIONS (1)
  - CYSTIC FIBROSIS [None]
